FAERS Safety Report 5447858-5 (Version None)
Quarter: 2007Q3

REPORT INFORMATION
  Report Type: 
  Country: None (occurrence: None)
  Receive Date: 20070910
  Receipt Date: 20070829
  Transmission Date: 20080115
  Serious: Yes (Other)
  Sender: FDA-Public Use
  Company Number: US-PFIZER INC-2007072491

PATIENT
  Sex: Male

DRUGS (1)
  1. GABAPENTIN [Suspect]

REACTIONS (2)
  - DUPUYTREN'S CONTRACTURE [None]
  - OEDEMA PERIPHERAL [None]
